FAERS Safety Report 5189028-4 (Version None)
Quarter: 2006Q4

REPORT INFORMATION
  Report Type: 
  Country: None (occurrence: None)
  Receive Date: 20061215
  Receipt Date: 20061206
  Transmission Date: 20070319
  Serious: Yes (Other)
  Sender: FDA-Public Use
  Company Number: 2006151181

PATIENT
  Sex: Female

DRUGS (2)
  1. DILANTIN [Suspect]
     Indication: EPILEPSY
  2. ANTIEPILEPTICS (ANTIEPILEPTICS) [Concomitant]

REACTIONS (2)
  - BONE MARROW DISORDER [None]
  - DRUG EXPOSURE DURING PREGNANCY [None]
